FAERS Safety Report 18997352 (Version 2)
Quarter: 2021Q1

REPORT INFORMATION
  Report Type: Spontaneous
  Country: KR (occurrence: KR)
  Receive Date: 20210311
  Receipt Date: 20210317
  Transmission Date: 20210420
  Serious: Yes (Death, Life-Threatening, Hospitalization, Other)
  Sender: FDA-Public Use
  Company Number: KR-STRIDES ARCOLAB LIMITED-2021SP002867

PATIENT
  Age: 1 Decade
  Sex: Male

DRUGS (7)
  1. PREDNISOLONE. [Suspect]
     Active Substance: PREDNISOLONE
     Indication: PYREXIA
     Dosage: 0.5 MG/KG/DAY
     Route: 065
  2. PREDNISOLONE. [Suspect]
     Active Substance: PREDNISOLONE
     Indication: ECZEMA
     Dosage: LESS THAN 0.5 MG/KG/DAY (SINCE THE AGE OF 5 MONTHS)
     Route: 065
  3. EPINEPHRINE. [Concomitant]
     Active Substance: EPINEPHRINE
     Indication: CROUP INFECTIOUS
     Dosage: UNK, INHALER
  4. DEXAMETHASONE. [Suspect]
     Active Substance: DEXAMETHASONE
     Indication: EVIDENCE BASED TREATMENT
     Dosage: 0.25 MILLIGRAM/KILOGRAM, EVERY 6 HRS
     Route: 042
  5. DEXAMETHASONE. [Suspect]
     Active Substance: DEXAMETHASONE
     Indication: CROUP INFECTIOUS
     Dosage: 0.3 MG/KG/DAY
     Route: 042
  6. DEXAMETHASONE. [Suspect]
     Active Substance: DEXAMETHASONE
     Indication: PARAINFLUENZAE VIRUS INFECTION
     Dosage: UNK, HIGH?DOSE DEXAMETHASONE WAS STOPPED
     Route: 065
  7. EPINEPHRINE. [Concomitant]
     Active Substance: EPINEPHRINE
     Indication: EVIDENCE BASED TREATMENT

REACTIONS (11)
  - Condition aggravated [Fatal]
  - Aspergillus infection [Fatal]
  - Off label use [Unknown]
  - Tracheobronchitis [Fatal]
  - Candida infection [Unknown]
  - Oral candidiasis [Unknown]
  - Cytomegalovirus chorioretinitis [Unknown]
  - Respiratory failure [Fatal]
  - Respiratory distress [Fatal]
  - Respiratory acidosis [Fatal]
  - Parainfluenzae virus infection [Unknown]
